FAERS Safety Report 5768439-X (Version None)
Quarter: 2008Q2

REPORT INFORMATION
  Report Type: 
  Country: None (occurrence: None)
  Receive Date: 20080612
  Receipt Date: 20080304
  Transmission Date: 20081010
  Serious: No
  Sender: FDA-Public Use
  Company Number: US-ABBOTT-08P-163-0441015-00

PATIENT

DRUGS (2)
  1. ADALIMUMAB [Suspect]
     Indication: TRANSMISSION OF DRUG VIA SEMEN
     Route: 050
  2. ADALIMUMAB [Suspect]

REACTIONS (2)
  - DRUG EXPOSURE DURING PREGNANCY [None]
  - TRANSMISSION OF DRUG VIA SEMEN [None]
